FAERS Safety Report 8100114-9 (Version None)
Quarter: 2012Q1

REPORT INFORMATION
  Report Type: 
  Country: None (occurrence: None)
  Receive Date: 20120129
  Receipt Date: 20111207
  Transmission Date: 20120608
  Serious: No
  Sender: FDA-Public Use
  Company Number: US-ABBOTT-11P-163-0879070-00

PATIENT
  Age: 62 Year
  Sex: Female

DRUGS (9)
  1. LASIX [Concomitant]
     Indication: PRODUCT USED FOR UNKNOWN INDICATION
     Dosage: WATER PILL
  2. DESOGESTREL AND ETHINYL ESTRADIOL [Concomitant]
     Indication: CROHN'S DISEASE
     Dosage: TWO PILLS IN THE MORNING, AND AT NIGHT
  3. HUMIRA [Suspect]
     Indication: CROHN'S DISEASE
     Dosage: LOADING DOSE
     Dates: start: 20111123
  4. HUMIRA [Suspect]
     Dosage: 2ND DOSE
     Dates: start: 20111207
  5. LEXAPRO [Concomitant]
     Indication: CRYING
  6. WELLBUTRIN [Concomitant]
     Indication: PRODUCT USED FOR UNKNOWN INDICATION
  7. POTASSIUM [Concomitant]
     Indication: PRODUCT USED FOR UNKNOWN INDICATION
     Dosage: ER QD
  8. NEXIUM [Concomitant]
     Indication: PRODUCT USED FOR UNKNOWN INDICATION
     Dosage: QD
  9. GLIPIZIDE [Concomitant]
     Indication: PRODUCT USED FOR UNKNOWN INDICATION
     Dosage: QD

REACTIONS (5)
  - NASOPHARYNGITIS [None]
  - INJECTION SITE PAIN [None]
  - NIGHT SWEATS [None]
  - HOT FLUSH [None]
  - INJECTION SITE HAEMORRHAGE [None]
